FAERS Safety Report 4687392-3 (Version None)
Quarter: 2005Q2

REPORT INFORMATION
  Report Type: 
  Country: None (occurrence: None)
  Receive Date: 20050608
  Receipt Date: 20050526
  Transmission Date: 20051028
  Serious: Yes (Other)
  Sender: FDA-Public Use
  Company Number: 2005072192

PATIENT
  Age: 39 Year
  Sex: Female
  Weight: 79.3795 kg

DRUGS (11)
  1. BEXTRA [Suspect]
     Indication: INFLAMMATION
     Dosage: 10 MG (10 MG, 1 IN 1 D), ORAL
     Route: 048
     Dates: start: 20010101
  2. PAXIL [Suspect]
     Indication: ILL-DEFINED DISORDER
     Dosage: 40 MG, UNKNOWN), ORAL
     Route: 048
  3. AMBIEN [Suspect]
     Indication: SLEEP DISORDER
     Dates: end: 20020101
  4. KLONOPIN [Concomitant]
  5. OXYCONTIN [Concomitant]
  6. TOPAMAX [Concomitant]
  7. TRAZODONE (TRAZODONE) [Concomitant]
  8. FLEXERIL [Concomitant]
  9. VICODIN ES [Concomitant]
  10. LIDODERM PATCH (LIDOCAINE HYDROCHLORIDE) [Concomitant]
  11. IBUPROFEN [Concomitant]

REACTIONS (9)
  - AMNESIA [None]
  - CONFUSIONAL STATE [None]
  - DEPRESSION [None]
  - DRUG DEPENDENCE [None]
  - DRUG WITHDRAWAL SYNDROME [None]
  - PSYCHOTIC DISORDER [None]
  - SOCIAL AVOIDANT BEHAVIOUR [None]
  - SUICIDAL IDEATION [None]
  - WEIGHT INCREASED [None]
